FAERS Safety Report 7077963-1 (Version None)
Quarter: 2010Q4

REPORT INFORMATION
  Report Type: 
  Country: None (occurrence: None)
  Receive Date: 20101101
  Receipt Date: 20100910
  Transmission Date: 20110411
  Serious: No
  Sender: FDA-Public Use
  Company Number: US-BAYER-201021473BCC

PATIENT
  Age: 34 Year
  Sex: Male
  Weight: 77 kg

DRUGS (3)
  1. ALEVE [Suspect]
     Indication: NEURALGIA
     Dosage: AS USED: 440/660/220 MG  UNIT DOSE: 220 MG
     Route: 048
     Dates: start: 20100909, end: 20100909
  2. ALEVE [Suspect]
     Dosage: TOTAL DAILY DOSE: 880 MG  UNIT DOSE: 220 MG
     Route: 048
     Dates: start: 20100910
  3. IBUPROFEN [Concomitant]
     Route: 065

REACTIONS (2)
  - HEADACHE [None]
  - NEURALGIA [None]
